FAERS Safety Report 6578872-4 (Version None)
Quarter: 2010Q1

REPORT INFORMATION
  Report Type: 
  Country: None (occurrence: None)
  Receive Date: 20100212
  Receipt Date: 20100209
  Transmission Date: 20100710
  Serious: Yes (Other)
  Sender: FDA-Public Use
  Company Number: US-ASTRAZENECA-2007UW09471

PATIENT
  Age: 19283 Day
  Sex: Male
  Weight: 111.1 kg

DRUGS (21)
  1. SEROQUEL [Suspect]
     Route: 048
     Dates: start: 19980101
  2. SEROQUEL [Suspect]
     Dosage: 25-100
     Route: 048
     Dates: start: 20040820
  3. GLUCOPHAGE [Concomitant]
     Dosage: 500 MG -1 GM
     Dates: start: 20030804
  4. HUMULIN N [Concomitant]
     Dosage: 20 UNITS, EVERY MORNING
     Dates: start: 20030804
  5. PAXIL [Concomitant]
     Indication: DEPRESSION
     Dosage: 20-30 MG
     Dates: start: 20030804
  6. ATENOLOL [Concomitant]
     Dates: start: 20040927
  7. LEVOXYL [Concomitant]
     Indication: HYPOTHYROIDISM
     Dosage: 50 MCG
     Dates: start: 20040520
  8. LIPITOR [Concomitant]
     Dosage: 20-40 MG
     Dates: start: 20040105
  9. LIPITOR [Concomitant]
     Dates: start: 20040817
  10. ISOSORBIDE MN [Concomitant]
     Dosage: 30 MG
     Dates: start: 20040213
  11. LISINOPRIL [Concomitant]
     Dates: start: 20040323
  12. AMITRIPTYLINE HCL [Concomitant]
     Dosage: 25 MG 2-3 TAB QHS PRN
     Dates: start: 20040416
  13. NITROTAB [Concomitant]
     Dates: start: 20040728
  14. GABAPENTIN [Concomitant]
     Dates: start: 20041028
  15. ACTOS [Concomitant]
     Indication: DIABETES MELLITUS
     Dates: start: 20041116
  16. ZOCOR [Concomitant]
     Indication: DYSLIPIDAEMIA
     Dates: start: 20041116
  17. PRILOSEC [Concomitant]
  18. ATIVAN [Concomitant]
  19. NAPRELAN [Concomitant]
     Indication: HEADACHE
  20. ZESTRIL [Concomitant]
  21. AMIRAL [Concomitant]

REACTIONS (7)
  - DIABETES MELLITUS [None]
  - DIABETES MELLITUS INADEQUATE CONTROL [None]
  - DIABETIC NEPHROPATHY [None]
  - DIABETIC NEUROPATHY [None]
  - NEUROPATHY PERIPHERAL [None]
  - TYPE 1 DIABETES MELLITUS [None]
  - TYPE 2 DIABETES MELLITUS [None]
